FAERS Safety Report 12104221 (Version 1)
Quarter: 2016Q1

REPORT INFORMATION
  Report Type: Spontaneous
  Country: US (occurrence: US)
  Receive Date: 20160223
  Receipt Date: 20160223
  Transmission Date: 20160526
  Serious: No
  Sender: FDA-Public Use
  Company Number: US-BAYER-2016-035157

PATIENT
  Sex: Female
  Weight: 52.15 kg

DRUGS (2)
  1. MIRALAX [Suspect]
     Active Substance: POLYETHYLENE GLYCOL 3350
     Dosage: 1 DF, QD
     Route: 048
     Dates: start: 2015
  2. MIRALAX [Suspect]
     Active Substance: POLYETHYLENE GLYCOL 3350
     Dosage: 0.5 DF, UNK
     Route: 048

REACTIONS (3)
  - Drug ineffective [None]
  - Intentional product use issue [None]
  - Drug ineffective [None]

NARRATIVE: CASE EVENT DATE: 201512
